FAERS Safety Report 5262334-0 (Version None)
Quarter: 2007Q1

REPORT INFORMATION
  Report Type: 
  Country: None (occurrence: None)
  Receive Date: 20061208
  Receipt Date: 20060828
  Transmission Date: 20070707
  Serious: Yes (Other)
  Sender: FDA-Public Use
  Company Number: USA-2006-0025048

PATIENT
  Age: 54 Year
  Sex: Female

DRUGS (4)
  1. OXYCODONE HCL [Suspect]
     Indication: OSTEOPOROSIS
     Dosage: 80 MG, TID, ORAL
     Route: 048
     Dates: start: 20060801
  2. DILANTIN [Concomitant]
  3. PREDNISONE [Concomitant]
  4. TOPAMAX [Concomitant]

REACTIONS (2)
  - CONVULSION [None]
  - DRUG INEFFECTIVE [None]
